FAERS Safety Report 25012452 (Version 1)
Quarter: 2025Q1

REPORT INFORMATION
  Report Type: Spontaneous
  Country: US (occurrence: US)
  Receive Date: 20250226
  Receipt Date: 20250226
  Transmission Date: 20250408
  Serious: No
  Sender: DR REDDYS
  Company Number: None

PATIENT
  Age: 46 Year
  Sex: Female

DRUGS (5)
  1. LAMOTRIGINE [Suspect]
     Active Substance: LAMOTRIGINE
     Indication: Epilepsy
  2. LAMOTRIGINE [Suspect]
     Active Substance: LAMOTRIGINE
     Dosage: TITRATED UP
  3. LORAZEPAM [Concomitant]
     Active Substance: LORAZEPAM
     Indication: Panic attack
     Dosage: ON A NIGHTLY BASIS
  4. CITALOPRAM [Concomitant]
     Active Substance: CITALOPRAM
     Indication: Panic attack
  5. AMPHETAMINE\DEXTROAMPHETAMINE [Concomitant]
     Active Substance: AMPHETAMINE\DEXTROAMPHETAMINE
     Indication: Panic attack

REACTIONS (1)
  - Insomnia [Unknown]
